FAERS Safety Report 8428057-1 (Version None)
Quarter: 2012Q2

REPORT INFORMATION
  Report Type: 
  Country: None (occurrence: None)
  Receive Date: 20120611
  Receipt Date: 20120530
  Transmission Date: 20120825
  Serious: Yes (Death, Other)
  Sender: FDA-Public Use
  Company Number: NO-BRISTOL-MYERS SQUIBB COMPANY-16146177

PATIENT
  Age: 49 Year
  Sex: Male

DRUGS (7)
  1. DOXORUBICIN HCL [Suspect]
     Indication: HODGKIN'S DISEASE
     Dosage: 35MG/M2,ON D1 FOR ESCALATED CYCLES
     Route: 042
  2. BLEOMYCIN SULFATE [Suspect]
     Indication: HODGKIN'S DISEASE
     Dosage: ON D8
     Route: 042
  3. ETOPOSIDE [Suspect]
     Indication: HODGKIN'S DISEASE
     Dosage: 100MG/M2 FOR THE STANDARD CYCLES D1 TO 3; 200MG/M2 FOR THE ESCALATED CYCLES FROM D1-3 IV
     Route: 042
  4. CYCLOPHOSPHAMIDE [Suspect]
     Indication: HODGKIN'S DISEASE
     Dosage: 650MG/M2 STANDARD CYCLES 1250 FOR THE ESCALATED CYCLES
     Route: 042
  5. VINCRISTINE [Suspect]
     Indication: HODGKIN'S DISEASE
     Dosage: ON D8
     Route: 042
  6. PREDNISOLONE [Suspect]
     Indication: HODGKIN'S DISEASE
     Dosage: ON DAYS 1 TO 14 IN EVERY 21 DAY CYCLE TREATMENT FOR 6 CYCLES
     Route: 048
  7. PROCARBAZINE HYDROCHLORIDE [Suspect]
     Indication: HODGKIN'S DISEASE
     Dosage: DAY1-7
     Route: 048

REACTIONS (6)
  - PYREXIA [None]
  - PNEUMOCYSTIS JIROVECI PNEUMONIA [None]
  - SEPTIC SHOCK [None]
  - INFECTION [None]
  - BONE MARROW FAILURE [None]
  - LUNG INFILTRATION [None]
